FAERS Safety Report 7350641-7 (Version None)
Quarter: 2011Q1

REPORT INFORMATION
  Report Type: 
  Country: None (occurrence: None)
  Receive Date: 20110314
  Receipt Date: 20110307
  Transmission Date: 20110831
  Serious: Yes (Disabling)
  Sender: FDA-Public Use
  Company Number: US-ASTRAZENECA-2011SE12897

PATIENT
  Age: 87 Year
  Sex: Female
  Weight: 61.2 kg

DRUGS (3)
  1. OMEPRAZOLE [Concomitant]
     Indication: GASTROOESOPHAGEAL REFLUX DISEASE
  2. CRESTOR [Suspect]
     Indication: HYPERCHOLESTEROLAEMIA
     Route: 048
     Dates: start: 20060101, end: 20110101
  3. CRESTOR [Suspect]
     Route: 048
     Dates: start: 20110101, end: 20110305

REACTIONS (6)
  - PAIN [None]
  - WHEELCHAIR USER [None]
  - TENDON DISORDER [None]
  - BODY HEIGHT DECREASED [None]
  - MUSCLE RUPTURE [None]
  - WRONG TECHNIQUE IN DRUG USAGE PROCESS [None]
